FAERS Safety Report 5242001-X (Version None)
Quarter: 2007Q1

REPORT INFORMATION
  Report Type: 
  Country: None (occurrence: None)
  Receive Date: 20070220
  Receipt Date: 20070209
  Transmission Date: 20070707
  Serious: Yes (Other)
  Sender: FDA-Public Use
  Company Number: GB-PFIZER INC-2007004464

PATIENT

DRUGS (1)
  1. NEURONTIN [Suspect]
     Route: 048

REACTIONS (1)
  - DRUG SCREEN POSITIVE [None]
